FAERS Safety Report 17469356 (Version 2)
Quarter: 2020Q1

REPORT INFORMATION
  Report Type: Spontaneous
  Country: PL (occurrence: PL)
  Receive Date: 20200227
  Receipt Date: 20200312
  Transmission Date: 20200409
  Serious: Yes (Hospitalization)
  Sender: FDA-Public Use
  Company Number: PL-MYLANLABS-2020M1000413

PATIENT
  Age: 63 Year
  Sex: Male

DRUGS (6)
  1. OXYCODONE [Interacting]
     Active Substance: OXYCODONE
     Dosage: 40 MILLIGRAM, BID, 12 HOURS
     Route: 065
  2. OXYCODONE [Interacting]
     Active Substance: OXYCODONE
     Dosage: 80 MILLIGRAM, QD
     Route: 065
  3. MORPHINE SULFATE. [Interacting]
     Active Substance: MORPHINE SULFATE
     Indication: BREAKTHROUGH PAIN
     Dosage: 10 MG, UNK
     Route: 058
  4. MORPHINE SULFATE. [Interacting]
     Active Substance: MORPHINE SULFATE
     Indication: BREAKTHROUGH PAIN
     Dosage: 10 MILLIGRAM(FAST-ACTING TABLETS)
     Route: 065
  5. PREGABALIN. [Suspect]
     Active Substance: PREGABALIN
     Indication: TUMOUR PAIN
     Dosage: 75 MILLIGRAM, BID 12 HOURS
  6. OXYCODONE [Interacting]
     Active Substance: OXYCODONE
     Indication: TUMOUR PAIN
     Dosage: 120 MILLIGRAM, QD, 120 MG, DAILY (TWO DIVIDED DOSES)
     Route: 065

REACTIONS (9)
  - Drug intolerance [Unknown]
  - Dry mouth [Recovering/Resolving]
  - Tremor [Recovered/Resolved]
  - Dysarthria [Recovering/Resolving]
  - Overdose [Unknown]
  - Somnolence [Recovered/Resolved]
  - Drug interaction [Unknown]
  - Nausea [Recovered/Resolved]
  - Therapy partial responder [Unknown]
